FAERS Safety Report 10792162 (Version 1)
Quarter: 2015Q1

REPORT INFORMATION
  Report Type: Spontaneous
  Country: US (occurrence: US)
  Receive Date: 20150213
  Receipt Date: 20150213
  Transmission Date: 20150721
  Serious: No
  Sender: FDA-Public Use
  Company Number: US-GLAXOSMITHKLINE-A1081602A

PATIENT

DRUGS (8)
  1. LIPITOR [Concomitant]
     Active Substance: ATORVASTATIN CALCIUM
  2. PROAIR HFA [Concomitant]
     Active Substance: ALBUTEROL SULFATE
  3. COUGH MEDICINE WITH CODEINE [Concomitant]
  4. VITAMIN D [Concomitant]
     Active Substance: CHOLECALCIFEROL
  5. FISH OIL [Concomitant]
     Active Substance: FISH OIL
  6. METFORMIN [Concomitant]
     Active Substance: METFORMIN HYDROCHLORIDE
  7. GABA [Concomitant]
     Active Substance: .GAMMA.-AMINOBUTYRIC ACID
  8. ADVAIR DISKUS [Suspect]
     Active Substance: FLUTICASONE PROPIONATE\SALMETEROL XINAFOATE
     Indication: BRONCHITIS
     Dosage: 115/21
     Route: 055
     Dates: start: 20140710

REACTIONS (7)
  - Chest pain [Unknown]
  - Cough [Unknown]
  - Malaise [Recovering/Resolving]
  - Oropharyngeal pain [Unknown]
  - Nasopharyngitis [Unknown]
  - Ill-defined disorder [Unknown]
  - Nasal congestion [Unknown]
